FAERS Safety Report 7457328-0 (Version None)
Quarter: 2011Q2

REPORT INFORMATION
  Report Type: 
  Country: None (occurrence: None)
  Receive Date: 20110504
  Receipt Date: 20110224
  Transmission Date: 20111010
  Serious: No
  Sender: FDA-Public Use
  Company Number: US-KINGPHARMUSA00001-K201100281

PATIENT
  Sex: Male

DRUGS (3)
  1. XANAX [Concomitant]
     Indication: ANXIETY
     Dosage: UNK
  2. ANTIHYPERTENSIVES [Concomitant]
     Indication: HYPERTENSION
     Dosage: UNK
  3. AVINZA [Suspect]
     Indication: PAIN
     Dosage: UNK

REACTIONS (5)
  - WEIGHT INCREASED [None]
  - FEELING ABNORMAL [None]
  - MICTURITION DISORDER [None]
  - DEPRESSION [None]
  - CONSTIPATION [None]
